FAERS Safety Report 9218221 (Version 1)
Quarter: 2013Q2

REPORT INFORMATION
  Report Type: Spontaneous
  Country: US (occurrence: US)
  Receive Date: 20130408
  Receipt Date: 20130408
  Transmission Date: 20140414
  Serious: No
  Sender: FDA-Public Use
  Company Number: US-009507513-1304USA002155

PATIENT
  Sex: Male

DRUGS (3)
  1. SAPHRIS [Suspect]
     Indication: MAJOR DEPRESSION
     Dosage: 5 MG, UNK
     Route: 048
     Dates: start: 201211
  2. SAPHRIS [Suspect]
     Indication: PSYCHOTIC DISORDER
  3. SAPHRIS [Suspect]
     Indication: POST-TRAUMATIC STRESS DISORDER

REACTIONS (2)
  - Oral mucosal blistering [Unknown]
  - Stomatitis [Unknown]
